FAERS Safety Report 8320141-6 (Version None)
Quarter: 2012Q2

REPORT INFORMATION
  Report Type: 
  Country: None (occurrence: None)
  Receive Date: 20120430
  Receipt Date: 20120419
  Transmission Date: 20120825
  Serious: Yes (Hospitalization, Other)
  Sender: FDA-Public Use
  Company Number: US-BIOGENIDEC-2011BI001855

PATIENT
  Age: 48 Year
  Sex: Female
  Weight: 85 kg

DRUGS (12)
  1. BACLOFEN [Concomitant]
  2. ZANTAC [Concomitant]
  3. TYSABRI [Suspect]
     Indication: MULTIPLE SCLEROSIS
     Route: 042
     Dates: start: 20080512, end: 20101217
  4. ATENOLOL [Concomitant]
  5. CETIRIZINE [Concomitant]
     Indication: MULTIPLE ALLERGIES
  6. VITAMIN B-12 [Concomitant]
  7. BACLOFEN [Concomitant]
  8. FISH OIL [Concomitant]
  9. MULTI-VITAMIN [Concomitant]
  10. ASPIRIN [Concomitant]
  11. VITAMIN D [Concomitant]
  12. TRAMADOL [Concomitant]
     Indication: PAIN

REACTIONS (10)
  - URINARY TRACT INFECTION [None]
  - IMMUNE RECONSTITUTION SYNDROME [None]
  - DIARRHOEA [None]
  - HAEMATOMA [None]
  - PROGRESSIVE MULTIFOCAL LEUKOENCEPHALOPATHY [None]
  - HAEMOGLOBIN DECREASED [None]
  - MESENTERIC VEIN THROMBOSIS [None]
  - BLOOD POTASSIUM DECREASED [None]
  - RETROPERITONEAL HAEMORRHAGE [None]
  - NAUSEA [None]
